FAERS Safety Report 7406921-X (Version None)
Quarter: 2011Q2

REPORT INFORMATION
  Report Type: 
  Country: None (occurrence: None)
  Receive Date: 20110406
  Receipt Date: 20110406
  Transmission Date: 20111010
  Serious: Yes (Life-Threatening, Other)
  Sender: FDA-Public Use
  Company Number: None

PATIENT
  Sex: Female
  Weight: 58.9676 kg

DRUGS (2)
  1. COZAAR [Suspect]
  2. LOSARTAN POTASSIUM [Suspect]

REACTIONS (5)
  - PRODUCT COUNTERFEIT [None]
  - COUGH [None]
  - OVERDOSE [None]
  - HOT FLUSH [None]
  - PRODUCT SUBSTITUTION ISSUE [None]
